FAERS Safety Report 14897350 (Version 2)
Quarter: 2018Q3

REPORT INFORMATION
  Report Type: Spontaneous
  Country: US (occurrence: US)
  Receive Date: 20180515
  Receipt Date: 20180801
  Transmission Date: 20181010
  Serious: Yes (Other)
  Sender: FDA-Public Use
  Company Number: US-OTSUKA-2018_010783

PATIENT

DRUGS (8)
  1. BUSULFEX [Suspect]
     Active Substance: BUSULFAN
     Indication: CONGENITAL APLASTIC ANAEMIA
  2. CYCLOPHOSPHAMIDE. [Suspect]
     Active Substance: CYCLOPHOSPHAMIDE
     Indication: CONGENITAL APLASTIC ANAEMIA
  3. BUSULFEX [Suspect]
     Active Substance: BUSULFAN
     Indication: BONE MARROW CONDITIONING REGIMEN
     Dosage: 4 DF, (D?7 TO ?6)
     Route: 065
  4. CYCLOPHOSPHAMIDE. [Suspect]
     Active Substance: CYCLOPHOSPHAMIDE
     Indication: BONE MARROW CONDITIONING REGIMEN
     Dosage: 10 MG/KG, QD [ X 4 DAYS (D?5 TO D?2)]
     Route: 065
  5. RABBIT ATG [Suspect]
     Active Substance: LAPINE T-LYMPHOCYTE IMMUNE GLOBULIN
     Indication: CONGENITAL APLASTIC ANAEMIA
  6. RABBIT ATG [Suspect]
     Active Substance: LAPINE T-LYMPHOCYTE IMMUNE GLOBULIN
     Indication: BONE MARROW CONDITIONING REGIMEN
     Dosage: 2.5 MG/KG, QD  [X 4 DAYS (D?5 TO D?2)]
     Route: 065
  7. FLUDARABINE [Suspect]
     Active Substance: FLUDARABINE PHOSPHATE
     Indication: CONGENITAL APLASTIC ANAEMIA
  8. FLUDARABINE [Suspect]
     Active Substance: FLUDARABINE PHOSPHATE
     Indication: BONE MARROW CONDITIONING REGIMEN
     Dosage: 35 MG/M2, QD [ X 4 DAYS (D?5 TO D?2)]
     Route: 065

REACTIONS (1)
  - Pulmonary haemorrhage [Unknown]
